FAERS Safety Report 13468332 (Version 1)
Quarter: 2017Q2

REPORT INFORMATION
  Report Type: Other
  Country: None (occurrence: US)
  Receive Date: 20170421
  Receipt Date: 20170421
  Transmission Date: 20170830
  Serious: Yes (Hospitalization, Other)
  Sender: FDA-Public Use
  Company Number: US-GUTHY-RENKER LLC-1065643

PATIENT
  Age: 49 Year
  Sex: Female

DRUGS (2)
  1. UNDISCLOSED ANTIDEPRESSANT FOR 15 YEARS. [Suspect]
     Active Substance: UNSPECIFIED INGREDIENT
  2. MEANINGFUL BEAUTY WELLNESS DIETARY SUPPLEMENT 30 DAY [Suspect]
     Active Substance: MINERALS\VITAMINS
     Indication: NUTRITIONAL SUPPLEMENTATION
     Route: 048
     Dates: start: 20170102, end: 20170107

REACTIONS (8)
  - Dehydration [None]
  - Asthenia [None]
  - Hypotension [None]
  - Toxicity to various agents [None]
  - Vomiting [Recovering/Resolving]
  - Syncope [None]
  - Product quality issue [None]
  - Loss of consciousness [None]

NARRATIVE: CASE EVENT DATE: 20170107
